FAERS Safety Report 26125720 (Version 1)
Quarter: 2025Q4

REPORT INFORMATION
  Report Type: Spontaneous
  Country: US (occurrence: None)
  Receive Date: 20251204
  Receipt Date: 20251204
  Transmission Date: 20260117
  Serious: Yes (Life-Threatening, Hospitalization, Disabling)
  Sender: FDA-CTU
  Company Number: None

PATIENT
  Age: 26 Year
  Sex: Male
  Weight: 79.2 kg

DRUGS (1)
  1. LEVETIRACETAM [Suspect]
     Active Substance: LEVETIRACETAM

REACTIONS (6)
  - Acute kidney injury [None]
  - Therapy cessation [None]
  - Seizure [None]
  - Shoulder fracture [None]
  - Joint dislocation [None]
  - Contrast media reaction [None]

NARRATIVE: CASE EVENT DATE: 20251102
